FAERS Safety Report 16021683 (Version 1)
Quarter: 2019Q1

REPORT INFORMATION
  Report Type: Spontaneous
  Country: GB (occurrence: GB)
  Receive Date: 20190301
  Receipt Date: 20190301
  Transmission Date: 20190418
  Serious: Yes (Disabling, Other)
  Sender: FDA-Public Use
  Company Number: GB-ACCORD-109500

PATIENT
  Age: 75 Year
  Sex: Female
  Weight: 66.67 kg

DRUGS (5)
  1. AMLODIPINE [Suspect]
     Active Substance: AMLODIPINE BESYLATE
     Indication: PRODUCT USED FOR UNKNOWN INDICATION
     Route: 048
     Dates: start: 20171101, end: 20180401
  2. VITAMINS NOS [Concomitant]
     Active Substance: VITAMINS
  3. CALCIUM/ERGOCALCIFEROL [Concomitant]
  4. LOPERAMIDE [Concomitant]
     Active Substance: LOPERAMIDE
  5. COD-LIVER OIL [Concomitant]
     Active Substance: COD LIVER OIL

REACTIONS (1)
  - Musculoskeletal disorder [Recovered/Resolved with Sequelae]

NARRATIVE: CASE EVENT DATE: 20180101
